FAERS Safety Report 15439898 (Version 1)
Quarter: 2018Q3

REPORT INFORMATION
  Report Type: Spontaneous
  Country: DE (occurrence: DE)
  Receive Date: 20180928
  Receipt Date: 20180928
  Transmission Date: 20181010
  Serious: Yes (Other)
  Sender: FDA-Public Use
  Company Number: DE-TEVA-2018-DE-957510

PATIENT
  Age: 75 Year
  Sex: Male

DRUGS (3)
  1. RASAGILIN [Concomitant]
     Active Substance: RASAGILINE MESYLATE
  2. LEVOCOMP [Concomitant]
     Active Substance: CARBIDOPA\LEVODOPA
  3. CLINDAMYCIN. [Suspect]
     Active Substance: CLINDAMYCIN
     Indication: INFLAMMATION
     Dosage: 1800 MILLIGRAM DAILY; 1?1?1 SINCE 4,5 MONTHS, PLANNED DURATION OF RECEIPT: UNTIL NOVEMBER
     Route: 048
     Dates: start: 201804

REACTIONS (4)
  - Asthenia [Not Recovered/Not Resolved]
  - Parkinson^s disease [Not Recovered/Not Resolved]
  - Walking aid user [Not Recovered/Not Resolved]
  - Gait disturbance [Not Recovered/Not Resolved]

NARRATIVE: CASE EVENT DATE: 2018
